FAERS Safety Report 11199857 (Version 1)
Quarter: 2015Q2

REPORT INFORMATION
  Report Type: Spontaneous
  Country: US (occurrence: US)
  Receive Date: 20150618
  Receipt Date: 20150618
  Transmission Date: 20150821
  Serious: No
  Sender: FDA-Public Use
  Company Number: US-GLAXOSMITHKLINE-US2015085038

PATIENT
  Age: 76 Year
  Sex: Female

DRUGS (2)
  1. FLONASE [Suspect]
     Active Substance: FLUTICASONE PROPIONATE
  2. FLONASE [Suspect]
     Active Substance: FLUTICASONE PROPIONATE
     Indication: HYPERSENSITIVITY
     Dosage: UNK
     Dates: end: 20150615

REACTIONS (5)
  - Hypertension [Recovered/Resolved]
  - Thermal burn [Not Recovered/Not Resolved]
  - Drug ineffective [Unknown]
  - Epistaxis [Not Recovered/Not Resolved]
  - Drug administration error [Unknown]
